FAERS Safety Report 24616426 (Version 1)
Quarter: 2024Q4

REPORT INFORMATION
  Report Type: Spontaneous
  Country: US (occurrence: US)
  Receive Date: 20241114
  Receipt Date: 20241114
  Transmission Date: 20250115
  Serious: No
  Sender: ABBVIE
  Company Number: US-ABBVIE-5992117

PATIENT
  Sex: Male

DRUGS (1)
  1. ELUXADOLINE [Suspect]
     Active Substance: ELUXADOLINE
     Indication: Irritable bowel syndrome
     Route: 048

REACTIONS (1)
  - Contraindication to medical treatment [Unknown]
